FAERS Safety Report 5307622-4 (Version None)
Quarter: 2007Q2

REPORT INFORMATION
  Report Type: 
  Country: None (occurrence: None)
  Receive Date: 20070425
  Receipt Date: 20070413
  Transmission Date: 20071010
  Serious: Yes (Hospitalization)
  Sender: FDA-Public Use
  Company Number: SG-PFIZER INC-2007029732

PATIENT
  Age: 61 Year
  Sex: Male

DRUGS (1)
  1. DILANTIN [Suspect]
     Route: 048
     Dates: start: 20060317, end: 20060408

REACTIONS (2)
  - MUCOSAL ULCERATION [None]
  - RASH MACULO-PAPULAR [None]
